FAERS Safety Report 14029387 (Version 1)
Quarter: 2017Q4

REPORT INFORMATION
  Report Type: Spontaneous
  Country: US (occurrence: US)
  Receive Date: 20171002
  Receipt Date: 20171002
  Transmission Date: 20180321
  Serious: No
  Sender: FDA-Public Use
  Company Number: US-JAZZ-2017-US-011089

PATIENT
  Sex: Female

DRUGS (30)
  1. XYREM [Suspect]
     Active Substance: SODIUM OXYBATE
     Indication: NARCOLEPSY
     Dosage: 4G, BID
     Route: 048
     Dates: start: 200911, end: 200912
  2. SULFACETAMIDE W/SULFUR [Concomitant]
  3. RIZATRIPTAN. [Concomitant]
     Active Substance: RIZATRIPTAN
  4. FENTORA [Concomitant]
     Active Substance: FENTANYL CITRATE
  5. YASMIN [Concomitant]
     Active Substance: DROSPIRENONE\ETHINYL ESTRADIOL
  6. XYREM [Suspect]
     Active Substance: SODIUM OXYBATE
     Dosage: 3 G, QD
     Route: 048
     Dates: start: 201609
  7. QUETIAPINE FUMARATE. [Concomitant]
     Active Substance: QUETIAPINE FUMARATE
  8. MOVANTIK [Concomitant]
     Active Substance: NALOXEGOL OXALATE
  9. MIDODRINE [Concomitant]
     Active Substance: MIDODRINE
  10. LYRICA [Concomitant]
     Active Substance: PREGABALIN
  11. CLEOCIN T [Concomitant]
     Active Substance: CLINDAMYCIN PHOSPHATE
  12. FLUOCINONIDE. [Concomitant]
     Active Substance: FLUOCINONIDE
  13. MAXALT [Concomitant]
     Active Substance: RIZATRIPTAN BENZOATE
  14. GABAPENTIN. [Concomitant]
     Active Substance: GABAPENTIN
  15. PROPRANOLOL [Concomitant]
     Active Substance: PROPRANOLOL HYDROCHLORIDE
  16. CLONIDINE HCL [Concomitant]
     Active Substance: CLONIDINE HYDROCHLORIDE
  17. VITAMIN D3 [Concomitant]
     Active Substance: CHOLECALCIFEROL
  18. CLONAZEPAM. [Concomitant]
     Active Substance: CLONAZEPAM
  19. XYREM [Suspect]
     Active Substance: SODIUM OXYBATE
     Indication: CATAPLEXY
     Dosage: 2.25G, BID
     Route: 048
     Dates: start: 201506, end: 201506
  20. DENTA 5000 PLUS [Concomitant]
     Active Substance: SODIUM FLUORIDE
  21. METHADONE HCL [Concomitant]
     Active Substance: METHADONE HYDROCHLORIDE
  22. CYMBALTA [Concomitant]
     Active Substance: DULOXETINE HYDROCHLORIDE
  23. ALENDRONATE SODIUM. [Concomitant]
     Active Substance: ALENDRONATE SODIUM
  24. XYREM [Suspect]
     Active Substance: SODIUM OXYBATE
     Dosage: 6G, QD
     Route: 048
     Dates: start: 201609
  25. SANCTURA [Concomitant]
     Active Substance: TROSPIUM CHLORIDE
  26. PRENATE                            /01249201/ [Concomitant]
  27. METOPROLOL. [Concomitant]
     Active Substance: METOPROLOL
  28. XYREM [Suspect]
     Active Substance: SODIUM OXYBATE
     Dosage: DOSE ADJUSTMENT
     Route: 048
     Dates: start: 201506, end: 201609
  29. TIZANIDINE HCL [Concomitant]
     Active Substance: TIZANIDINE HYDROCHLORIDE
  30. RELISTOR [Concomitant]
     Active Substance: METHYLNALTREXONE BROMIDE

REACTIONS (2)
  - Unevaluable event [Not Recovered/Not Resolved]
  - Ligament sprain [Not Recovered/Not Resolved]
